FAERS Safety Report 16341033 (Version 1)
Quarter: 2019Q2

REPORT INFORMATION
  Report Type: Spontaneous
  Country: US (occurrence: US)
  Receive Date: 20190416
  Receipt Date: 20190416
  Transmission Date: 20190711
  Serious: Yes (Other)
  Sender: FDA-Public Use
  Company Number: None

PATIENT
  Age: 75 Year
  Sex: Female
  Weight: 81.65 kg

DRUGS (13)
  1. PREDNISOLONE-GALIFLOXACIN-BROMFENAC OPHTHALMIC SUSPENSION [Suspect]
     Active Substance: BROMFENAC\GATIFLOXACIN\PREDNISOLONE
     Indication: CATARACT OPERATION
     Dates: start: 20181210, end: 20190124
  2. VITAMIN B12 [Concomitant]
     Active Substance: CYANOCOBALAMIN
  3. CALCIUM [Concomitant]
     Active Substance: CALCIUM
  4. PAPAYA. [Concomitant]
     Active Substance: PAPAYA
  5. SYSTANE (HYPROMELLOSE 2910 (4000 MPA.S)) [Concomitant]
     Active Substance: HYPROMELLOSE 2910 (4000 MPA.S)
  6. ADVIL [Concomitant]
     Active Substance: IBUPROFEN
  7. SUDAFED [Concomitant]
     Active Substance: PSEUDOEPHEDRINE HYDROCHLORIDE
  8. RANITIDINE. [Concomitant]
     Active Substance: RANITIDINE
  9. VIT+MIN [Concomitant]
  10. EXTRA D3 [Concomitant]
  11. GLUCOSAMINE [Concomitant]
     Active Substance: GLUCOSAMINE
  12. ROSUVASTATIN. [Concomitant]
     Active Substance: ROSUVASTATIN
  13. TYLENOL [Concomitant]
     Active Substance: ACETAMINOPHEN

REACTIONS (8)
  - Nausea [None]
  - Feeding disorder [None]
  - Hypersensitivity [None]
  - Oropharyngeal pain [None]
  - Parosmia [None]
  - Eye disorder [None]
  - Chest pain [None]
  - Abdominal pain upper [None]

NARRATIVE: CASE EVENT DATE: 20181227
